FAERS Safety Report 5838020-2 (Version None)
Quarter: 2008Q3

REPORT INFORMATION
  Report Type: 
  Country: None (occurrence: None)
  Receive Date: 20080808
  Receipt Date: 20080310
  Transmission Date: 20090109
  Serious: No
  Sender: FDA-Public Use
  Company Number: A0714320A

PATIENT
  Sex: Female

DRUGS (2)
  1. PAXIL [Suspect]
     Indication: DRUG USE FOR UNKNOWN INDICATION
     Route: 048
  2. KLONOPIN [Concomitant]

REACTIONS (4)
  - ANXIETY [None]
  - MUSCLE SPASMS [None]
  - TREMOR [None]
  - WITHDRAWAL SYNDROME [None]
